FAERS Safety Report 12201894 (Version 3)
Quarter: 2016Q2

REPORT INFORMATION
  Report Type: Report from Study
  Country: AU (occurrence: AU)
  Receive Date: 20160322
  Receipt Date: 20160418
  Transmission Date: 20160815
  Serious: Yes (Death, Life-Threatening, Hospitalization, Other)
  Sender: FDA-Public Use
  Company Number: AU-KADMON PHARMACEUTICALS, LLC-KAD201603-000951

PATIENT
  Age: 76 Year
  Sex: Female
  Weight: 35 kg

DRUGS (11)
  1. FOLIC ACID. [Concomitant]
     Active Substance: FOLIC ACID
     Indication: AUTOIMMUNE HAEMOLYTIC ANAEMIA
     Route: 048
     Dates: end: 201511
  2. RIBAVIRIN. [Suspect]
     Active Substance: RIBAVIRIN
     Indication: HEPATITIS C
     Dosage: TABLET
     Route: 048
     Dates: start: 20151111, end: 20151115
  3. RANITIDINE. [Concomitant]
     Active Substance: RANITIDINE
     Indication: GASTROOESOPHAGEAL REFLUX DISEASE
     Route: 048
     Dates: end: 201511
  4. SPIRACTIN [Concomitant]
     Active Substance: SPIRONOLACTONE
     Indication: OEDEMA PERIPHERAL
     Route: 048
     Dates: end: 201511
  5. SPIRACTIN [Concomitant]
     Active Substance: SPIRONOLACTONE
     Indication: ASCITES
  6. THYROXINE SODIUM [Concomitant]
     Active Substance: LEVOTHYROXINE SODIUM
     Indication: HYPOTHYROIDISM
     Route: 048
  7. OMEPRAZOLE. [Concomitant]
     Active Substance: OMEPRAZOLE
     Indication: GASTROOESOPHAGEAL REFLUX DISEASE
     Route: 048
     Dates: end: 201511
  8. VIEKIRA PAK [Suspect]
     Active Substance: DASABUVIR\OMBITASVIR\PARITAPREVIR\RITONAVIR
     Indication: HEPATITIS C
     Dosage: TABLET; 2X OMBITASVIR/PARITAPREVIR/RITONAVIR TWICE DAILY AND 1X DASABUVIR TWICE DAILY
     Route: 048
     Dates: start: 20151111, end: 20151115
  9. FELODIPINE. [Suspect]
     Active Substance: FELODIPINE
  10. ATENOLOL. [Concomitant]
     Active Substance: ATENOLOL
     Indication: HYPERTENSION
     Route: 048
     Dates: end: 201511
  11. FELODIPINE. [Concomitant]
     Active Substance: FELODIPINE
     Indication: HYPERTENSION
     Route: 048
     Dates: end: 201511

REACTIONS (23)
  - Retching [Unknown]
  - Ischaemia [Fatal]
  - Nausea [Unknown]
  - Stevens-Johnson syndrome [Fatal]
  - Rhabdomyolysis [Unknown]
  - Cardiovascular insufficiency [Fatal]
  - Hyponatraemia [Unknown]
  - Anaemia [Unknown]
  - Bradycardia [Unknown]
  - Renal failure [Fatal]
  - Toxic epidermal necrolysis [Fatal]
  - Loss of consciousness [Unknown]
  - Polyp [Fatal]
  - Adverse drug reaction [Fatal]
  - Blood bilirubin increased [Unknown]
  - Vomiting [Unknown]
  - Drug interaction [Unknown]
  - Condition aggravated [Unknown]
  - Fatigue [Unknown]
  - Cyanosis [Fatal]
  - Hepatic failure [Fatal]
  - Respiratory failure [Fatal]
  - Decreased appetite [Unknown]

NARRATIVE: CASE EVENT DATE: 201511
